FAERS Safety Report 6717130-1 (Version None)
Quarter: 2010Q2

REPORT INFORMATION
  Report Type: 
  Country: None (occurrence: None)
  Receive Date: 20100505
  Receipt Date: 20100422
  Transmission Date: 20101027
  Serious: Yes (Hospitalization)
  Sender: FDA-Public Use
  Company Number: 220074J10USA

PATIENT
  Age: 12 Year
  Sex: Male

DRUGS (1)
  1. SAIZEN [Suspect]
     Indication: GROWTH HORMONE DEFICIENCY
     Dosage: 1.7 MG
     Dates: start: 20100121, end: 20100224

REACTIONS (5)
  - BENIGN INTRACRANIAL HYPERTENSION [None]
  - BLINDNESS UNILATERAL [None]
  - NO THERAPEUTIC RESPONSE [None]
  - STRABISMUS [None]
  - VIRAL INFECTION [None]
